FAERS Safety Report 21161356 (Version 1)
Quarter: 2022Q3

REPORT INFORMATION
  Report Type: Spontaneous
  Country: US (occurrence: None)
  Receive Date: 20220801
  Receipt Date: 20220801
  Transmission Date: 20221026
  Serious: Yes (Life-Threatening, Other)
  Sender: FDA-Public Use
  Company Number: None

PATIENT
  Age: 61 Year
  Sex: Female
  Weight: 46.7 kg

DRUGS (1)
  1. OXALIPLATIN [Suspect]
     Active Substance: OXALIPLATIN
     Indication: Product used for unknown indication

REACTIONS (7)
  - Nausea [None]
  - Vomiting [None]
  - Abdominal pain [None]
  - Pelvic pain [None]
  - Chills [None]
  - Blood pressure increased [None]
  - Tachycardia [None]

NARRATIVE: CASE EVENT DATE: 20220728
